FAERS Safety Report 7205838-3 (Version None)
Quarter: 2010Q4

REPORT INFORMATION
  Report Type: 
  Country: None (occurrence: None)
  Receive Date: 20101231
  Receipt Date: 20101222
  Transmission Date: 20110411
  Serious: Yes (Hospitalization, Other)
  Sender: FDA-Public Use
  Company Number: FR-PFIZER INC-FR-WYE-G06845410

PATIENT
  Age: 63 Year
  Sex: Female

DRUGS (6)
  1. NOVATREX [Suspect]
     Indication: RHEUMATOID ARTHRITIS
     Dosage: 15 MG, WEEKLY
     Route: 048
     Dates: start: 20020101, end: 20100730
  2. CELEBREX [Suspect]
     Indication: RHEUMATOID ARTHRITIS
     Dosage: UNK
     Route: 048
     Dates: end: 20100730
  3. IXPRIM [Suspect]
     Indication: RHEUMATOID ARTHRITIS
     Dosage: UNK
     Route: 048
     Dates: end: 20100730
  4. IXPRIM [Suspect]
     Dosage: UNK
  5. TOCILIZUMAB [Concomitant]
     Dosage: 200
     Route: 042
     Dates: start: 20100901
  6. TOCILIZUMAB [Concomitant]
     Dosage: UNK
     Route: 042
     Dates: start: 20100602, end: 20100630

REACTIONS (2)
  - CYTOLYTIC HEPATITIS [None]
  - INTERSTITIAL LUNG DISEASE [None]
